FAERS Safety Report 8922202 (Version 1)
Quarter: 2012Q4

REPORT INFORMATION
  Report Type: 
  Country: US (occurrence: None)
  Receive Date: 20121120
  Receipt Date: 20121120
  Transmission Date: 20130627
  Serious: Yes (Hospitalization)
  Sender: FDA-Public Use
  Company Number: None

PATIENT
  Sex: Female
  Weight: 100.6 kg

DRUGS (6)
  1. DAUNORUBICIN [Suspect]
  2. PEG-L-ASPARAGINASE (PEGASPARGASE, ONCOSPAR) [Suspect]
  3. PREDNISONE [Suspect]
  4. VINCRISTINE SULFATE [Suspect]
  5. CYTARABINE [Suspect]
  6. METHOTREXATE [Suspect]

REACTIONS (10)
  - Vomiting [None]
  - Abdominal pain [None]
  - Dehydration [None]
  - Hypotension [None]
  - Tachycardia [None]
  - Pancreatitis [None]
  - Atelectasis [None]
  - Haemodynamic instability [None]
  - Neutrophil count decreased [None]
  - Pyrexia [None]
